APPROVED DRUG PRODUCT: AQNEURSA
Active Ingredient: LEVACETYLLEUCINE
Strength: 1GM/PACKET
Dosage Form/Route: FOR SUSPENSION;ORAL
Application: N219132 | Product #001
Applicant: INTRABIO INC
Approved: Sep 24, 2024 | RLD: Yes | RS: Yes | Type: RX

PATENTS:
Patent 11400067 | Expires: Apr 19, 2037
Patent 12433862 | Expires: Apr 19, 2037
Patent 12433863 | Expires: Apr 19, 2037

EXCLUSIVITY:
Code: NCE | Date: Sep 24, 2029
Code: ODE-498 | Date: Sep 24, 2031